FAERS Safety Report 4894523-9 (Version None)
Quarter: 2006Q1

REPORT INFORMATION
  Report Type: 
  Country: None (occurrence: None)
  Receive Date: 20060127
  Receipt Date: 20060119
  Transmission Date: 20060701
  Serious: Yes (Death)
  Sender: FDA-Public Use
  Company Number: EC-ABBOTT-06P-047-0323495-00

PATIENT
  Sex: Male
  Weight: 35 kg

DRUGS (2)
  1. KALETRA [Suspect]
     Indication: HIV INFECTION
     Route: 048
     Dates: start: 20051007, end: 20051020
  2. LAMIVUDINE AND STAVUDINE [Concomitant]
     Indication: HIV INFECTION
     Route: 048
     Dates: start: 20051007

REACTIONS (1)
  - COMPLETED SUICIDE [None]
